FAERS Safety Report 5388431-7 (Version None)
Quarter: 2007Q3

REPORT INFORMATION
  Report Type: 
  Country: None (occurrence: None)
  Receive Date: 20070716
  Receipt Date: 20070702
  Transmission Date: 20080115
  Serious: Yes (Death, Hospitalization)
  Sender: FDA-Public Use
  Company Number: FR-ROCHE-506104

PATIENT
  Age: 39 Year
  Sex: Male

DRUGS (5)
  1. CAPECITABINE [Suspect]
     Indication: METASTATIC GASTRIC CANCER
     Dosage: GIVEN FROM DAY 2 TO 15 OF THE CYCLE.
     Route: 048
  2. EPIRUBICIN [Suspect]
     Indication: METASTATIC GASTRIC CANCER
     Route: 042
  3. CISPLATIN [Suspect]
     Indication: METASTATIC GASTRIC CANCER
     Route: 042
  4. DURAGESIC-100 [Concomitant]
     Dates: start: 20060905
  5. EPO [Concomitant]

REACTIONS (2)
  - ANAEMIA [None]
  - GENERAL PHYSICAL HEALTH DETERIORATION [None]
